FAERS Safety Report 6930365-8 (Version None)
Quarter: 2010Q3

REPORT INFORMATION
  Report Type: 
  Country: None (occurrence: None)
  Receive Date: 20100818
  Receipt Date: 20100811
  Transmission Date: 20110219
  Serious: Yes (Hospitalization)
  Sender: FDA-Public Use
  Company Number: US-SANOFI-AVENTIS-2010SA048210

PATIENT
  Age: 77 Year
  Sex: Male

DRUGS (2)
  1. LANTUS [Suspect]
     Indication: DIABETES MELLITUS
     Dosage: DOSE:60 UNIT(S)
     Route: 058
  2. SOLOSTAR [Suspect]
     Indication: DIABETES MELLITUS

REACTIONS (1)
  - PNEUMONIA [None]
